FAERS Safety Report 21087350 (Version 1)
Quarter: 2022Q3

REPORT INFORMATION
  Report Type: Spontaneous
  Country: US (occurrence: None)
  Receive Date: 20220714
  Receipt Date: 20220714
  Transmission Date: 20221027
  Serious: Yes (Hospitalization)
  Sender: FDA-Public Use
  Company Number: None

PATIENT
  Age: 42 Year
  Sex: Male
  Weight: 120.66 kg

DRUGS (1)
  1. NICOTINE POLACRILEX [Suspect]
     Active Substance: NICOTINE
     Indication: Ex-tobacco user
     Dosage: FREQUENCY : AS NEEDED;?
     Route: 048
     Dates: start: 20220211, end: 20220212

REACTIONS (1)
  - Angioedema [None]

NARRATIVE: CASE EVENT DATE: 20220212
